FAERS Safety Report 7812825-0 (Version None)
Quarter: 2011Q4

REPORT INFORMATION
  Report Type: 
  Country: None (occurrence: None)
  Receive Date: 20111011
  Receipt Date: 20110926
  Transmission Date: 20120403
  Serious: Yes (Other)
  Sender: FDA-Public Use
  Company Number: 2011SP044579

PATIENT
  Age: 49 Year
  Sex: Male

DRUGS (2)
  1. REBETOL [Suspect]
     Indication: HEPATITIS C
     Dates: start: 20010101, end: 20010101
  2. VIRAFERONPEG [Suspect]
     Indication: HEPATITIS C
     Dates: start: 20010101, end: 20010101

REACTIONS (4)
  - CUTANEOUS SARCOIDOSIS [None]
  - WHITE BLOOD CELL COUNT DECREASED [None]
  - PULMONARY SARCOIDOSIS [None]
  - DISEASE RECURRENCE [None]
